FAERS Safety Report 18558295 (Version 1)
Quarter: 2020Q4

REPORT INFORMATION
  Report Type: Spontaneous
  Country: BR (occurrence: BR)
  Receive Date: 20201130
  Receipt Date: 20201130
  Transmission Date: 20210114
  Serious: Yes (Other)
  Sender: FDA-Public Use
  Company Number: BR-EMD SERONO-9201567

PATIENT
  Age: 53 Year
  Sex: Female

DRUGS (1)
  1. GLIFAGE [Suspect]
     Active Substance: METFORMIN HYDROCHLORIDE
     Indication: DIABETES MELLITUS
     Route: 048
     Dates: start: 20181123

REACTIONS (1)
  - Coeliac disease [Unknown]

NARRATIVE: CASE EVENT DATE: 202011
